FAERS Safety Report 18306964 (Version 1)
Quarter: 2020Q3

REPORT INFORMATION
  Report Type: Spontaneous
  Country: US (occurrence: US)
  Receive Date: 20200924
  Receipt Date: 20200924
  Transmission Date: 20201103
  Serious: No
  Sender: FDA-Public Use
  Company Number: US-GW PHARMA-202009USGW03184

PATIENT

DRUGS (2)
  1. EPIDIOLEX [Suspect]
     Active Substance: CANNABIDIOL
     Indication: SEIZURE
  2. EPIDIOLEX [Suspect]
     Active Substance: CANNABIDIOL
     Indication: CONVERSION DISORDER
     Dosage: 800 MILLIGRAM, BID
     Route: 048
     Dates: start: 202006

REACTIONS (2)
  - Product use in unapproved indication [Unknown]
  - Chromaturia [Unknown]

NARRATIVE: CASE EVENT DATE: 2020
